FAERS Safety Report 15621292 (Version 4)
Quarter: 2018Q4

REPORT INFORMATION
  Report Type: Spontaneous
  Country: PH (occurrence: PH)
  Receive Date: 20181115
  Receipt Date: 20181227
  Transmission Date: 20190205
  Serious: Yes (Hospitalization)
  Sender: FDA-Public Use
  Company Number: PH-SA-2018SA310238

PATIENT
  Age: 59 Year
  Sex: Female

DRUGS (14)
  1. ISONIAZID. [Suspect]
     Active Substance: ISONIAZID
     Dosage: 300 UNK
     Route: 048
     Dates: start: 20181015, end: 20181211
  2. ISONIAZID. [Suspect]
     Active Substance: ISONIAZID
     Indication: TUBERCULOSIS
     Dosage: 300 MG, QD
     Route: 048
     Dates: start: 20181009, end: 20181014
  3. PYRAZINAMIDE. [Suspect]
     Active Substance: PYRAZINAMIDE
     Indication: TUBERCULOSIS
     Dosage: 1500 MG, QD
     Route: 048
     Dates: start: 20181009, end: 20181014
  4. LINEZOLID. [Suspect]
     Active Substance: LINEZOLID
     Dosage: 600 UNK
     Route: 048
     Dates: start: 20181015, end: 20181211
  5. LEVOFLOXACIN. [Suspect]
     Active Substance: LEVOFLOXACIN
     Indication: TUBERCULOSIS
     Dosage: 1000 MG, QD
     Route: 048
     Dates: start: 20181009, end: 20181014
  6. LINEZOLID. [Suspect]
     Active Substance: LINEZOLID
     Indication: TUBERCULOSIS
     Dosage: 600 MG, QD
     Route: 048
     Dates: start: 20181009, end: 20181014
  7. LEVOFLOXACIN. [Suspect]
     Active Substance: LEVOFLOXACIN
     Dosage: 1000 UNK
     Route: 048
     Dates: start: 20181015, end: 20181211
  8. REBAMIPIDE [Concomitant]
     Active Substance: REBAMIPIDE
     Dosage: 100 MG
     Route: 048
     Dates: start: 20181013
  9. PANTOPRAZOLE [Concomitant]
     Active Substance: PANTOPRAZOLE
     Dosage: 40 MG
     Route: 048
     Dates: start: 20181014
  10. METFORMIN HYDROCHLORIDE. [Suspect]
     Active Substance: METFORMIN HYDROCHLORIDE
     Indication: TYPE 2 DIABETES MELLITUS
     Dosage: 500 MG, TID
     Route: 048
     Dates: start: 20181005, end: 20181013
  11. RIFAPENTINE [Suspect]
     Active Substance: RIFAPENTINE
     Indication: TUBERCULOSIS
     Dosage: 1200 MG, QD
     Route: 048
     Dates: start: 20181009, end: 20181014
  12. RIFAPENTINE [Suspect]
     Active Substance: RIFAPENTINE
     Dosage: 1200 UNK
     Route: 048
     Dates: start: 20181015, end: 20181211
  13. PYRAZINAMIDE. [Suspect]
     Active Substance: PYRAZINAMIDE
     Dosage: 1500 UNK
     Route: 048
     Dates: start: 20181015, end: 20181211
  14. INSULIN [Concomitant]
     Active Substance: INSULIN NOS
     Dosage: UNK UNK, UNK
     Route: 058
     Dates: start: 20181016

REACTIONS (5)
  - Gastrointestinal haemorrhage [Not Recovered/Not Resolved]
  - Vomiting [Recovered/Resolved]
  - Liver function test abnormal [Not Recovered/Not Resolved]
  - Nausea [Unknown]
  - Vomiting [Recovered/Resolved]

NARRATIVE: CASE EVENT DATE: 20181013
